FAERS Safety Report 20568331 (Version 1)
Quarter: 2022Q1

REPORT INFORMATION
  Report Type: Spontaneous
  Country: US (occurrence: US)
  Receive Date: 20220308
  Receipt Date: 20220308
  Transmission Date: 20220424
  Serious: No
  Sender: FDA-Public Use
  Company Number: US-PFIZER INC-202101325623

PATIENT
  Sex: Female

DRUGS (3)
  1. CABERGOLINE [Suspect]
     Active Substance: CABERGOLINE
     Indication: Hyperprolactinaemia
     Dosage: 0.5 MG, 2X/DAY
     Dates: start: 202003, end: 202007
  2. CABERGOLINE [Suspect]
     Active Substance: CABERGOLINE
     Dosage: UNK
  3. CABERGOLINE [Suspect]
     Active Substance: CABERGOLINE
     Dosage: 0.5 DF
     Dates: start: 20210930

REACTIONS (4)
  - Overdose [Unknown]
  - Feeling abnormal [Unknown]
  - Malaise [Unknown]
  - Intentional product use issue [Unknown]
